FAERS Safety Report 6235611-4 (Version None)
Quarter: 2009Q2

REPORT INFORMATION
  Report Type: 
  Country: None (occurrence: None)
  Receive Date: 20090616
  Receipt Date: 20090602
  Transmission Date: 20091009
  Serious: Yes (Disabling)
  Sender: FDA-Public Use
  Company Number: SPV1-2009-01113

PATIENT
  Age: 58 Year
  Sex: Male

DRUGS (1)
  1. ANAGRELIDE HCL [Suspect]
     Indication: THROMBOCYTHAEMIA
     Dosage: 1.5 MG, 2X/DAY:BID,
     Dates: start: 20080901

REACTIONS (1)
  - CARDIAC FIBRILLATION [None]
